FAERS Safety Report 16972721 (Version 2)
Quarter: 2019Q4

REPORT INFORMATION
  Report Type: Report from Study
  Country: GB (occurrence: GB)
  Receive Date: 20191030
  Receipt Date: 20191104
  Transmission Date: 20200122
  Serious: No
  Sender: FDA-Public Use
  Company Number: GB-ROCHE-2455245

PATIENT
  Age: 33 Year
  Sex: Male

DRUGS (1)
  1. RITUXIMAB. [Suspect]
     Active Substance: RITUXIMAB
     Indication: IMMUNOGLOBULIN G4 RELATED DISEASE
     Dosage: UNK
     Route: 065

REACTIONS (2)
  - Intentional product use issue [Unknown]
  - Off label use [Unknown]
